FAERS Safety Report 20965241 (Version 6)
Quarter: 2023Q4

REPORT INFORMATION
  Report Type: Report from Study
  Country: IT (occurrence: IT)
  Receive Date: 20220616
  Receipt Date: 20231017
  Transmission Date: 20240109
  Serious: Yes (Other)
  Sender: FDA-Public Use
  Company Number: IT-CELLTRION INC.-2022IT009003

PATIENT

DRUGS (19)
  1. TRASTUZUMAB [Suspect]
     Active Substance: TRASTUZUMAB
     Indication: Breast cancer metastatic
     Dosage: 6 MILLIGRAM/KILOGRAM, Q3WEEKS
     Route: 042
     Dates: start: 20171116
  2. DOCETAXEL [Suspect]
     Active Substance: DOCETAXEL
     Indication: Breast cancer metastatic
     Dosage: 80 MILLIGRAM/SQ. METER
     Route: 042
     Dates: start: 20171116, end: 20180220
  3. LEUPROLIDE ACETATE [Suspect]
     Active Substance: LEUPROLIDE ACETATE
     Indication: Breast cancer metastatic
     Dosage: 3.75 MILLIGRAM, QD
     Route: 058
     Dates: start: 20180801, end: 20180912
  4. TAMOXIFEN [Suspect]
     Active Substance: TAMOXIFEN
     Indication: Breast cancer metastatic
     Dosage: 20 MILLIGRAM, QD
     Route: 048
     Dates: start: 20180913
  5. PERTUZUMAB [Suspect]
     Active Substance: PERTUZUMAB
     Indication: Breast cancer metastatic
     Dosage: 420 MILLIGRAM, Q3WEEKS
     Route: 042
     Dates: start: 20171116
  6. LETROZOLE [Suspect]
     Active Substance: LETROZOLE
     Indication: Breast cancer metastatic
     Dosage: 2.5 MILLIGRAM, QD
     Route: 048
     Dates: start: 20180801, end: 20180820
  7. EXEMESTANE [Suspect]
     Active Substance: EXEMESTANE
     Indication: Breast cancer metastatic
     Dosage: 25 MILLIGRAM, QD
     Route: 048
     Dates: start: 20180820, end: 20180912
  8. CHLORPHENIRAMINE [Concomitant]
     Active Substance: CHLORPHENIRAMINE
     Dosage: 10 MILLIGRAM
     Route: 042
     Dates: start: 20171123, end: 20180212
  9. KETOROLAC [Concomitant]
     Active Substance: KETOROLAC TROMETHAMINE
     Indication: Abdominal pain
     Dosage: UNK UNK, QD
     Route: 030
     Dates: start: 20200820, end: 20200820
  10. METHYLPREDNISOLONE [Concomitant]
     Active Substance: METHYLPREDNISOLONE
     Indication: Lip oedema
     Dosage: 4 MILLIGRAM, QD
     Route: 048
     Dates: start: 20200413, end: 20200416
  11. METHYLPREDNISOLONE [Concomitant]
     Active Substance: METHYLPREDNISOLONE
     Indication: Musculoskeletal pain
     Dosage: 16 MILLIGRAM, QD
     Route: 048
     Dates: start: 20180313
  12. RANITIDINE [Concomitant]
     Active Substance: RANITIDINE
     Dosage: PRN (AS NEEDED)
     Route: 042
     Dates: start: 20171123, end: 20180212
  13. BISOPROLOL FUMARATE [Concomitant]
     Active Substance: BISOPROLOL FUMARATE
     Indication: Tachycardia
     Dosage: 10 MILLIGRAM, QD
     Route: 048
     Dates: start: 20181105
  14. DEXAMETHASONE [Concomitant]
     Active Substance: DEXAMETHASONE
     Dosage: PRN (AS NEEDED)
     Route: 042
     Dates: start: 20171123, end: 20180125
  15. DEXAMETHASONE [Concomitant]
     Active Substance: DEXAMETHASONE
     Dosage: ONGOING = NOT CHECKED
     Route: 042
     Dates: start: 20180313, end: 20180313
  16. DEXAMETHASONE [Concomitant]
     Active Substance: DEXAMETHASONE
     Dosage: ONGOING = NOT CHECKED
     Route: 042
     Dates: start: 20180202, end: 20180212
  17. ZOLEDRONIC ACID [Concomitant]
     Active Substance: ZOLEDRONIC ACID
     Dosage: 4 MILLIGRAM, EVERY 21 DAYS
     Route: 042
     Dates: start: 20180419, end: 20200406
  18. AMOXICILLIN\CLAVULANIC ACID [Concomitant]
     Active Substance: AMOXICILLIN\CLAVULANIC ACID
     Indication: Paronychia
     Dosage: 1 DOSAGE FORM (0.5 PER DAY)
     Route: 048
     Dates: start: 20191007, end: 20191012
  19. ONDANSETRON [Concomitant]
     Active Substance: ONDANSETRON
     Dosage: PRN (AS NEEDED)
     Route: 042
     Dates: start: 20171123, end: 20180212

REACTIONS (6)
  - Neurotoxicity [Recovered/Resolved]
  - Visual field defect [Recovered/Resolved]
  - Headache [Recovered/Resolved]
  - Headache [Recovered/Resolved]
  - Asthenia [Recovered/Resolved]
  - Diarrhoea [Recovered/Resolved]

NARRATIVE: CASE EVENT DATE: 20171130
